FAERS Safety Report 7482423-X (Version None)
Quarter: 2011Q2

REPORT INFORMATION
  Report Type: 
  Country: None (occurrence: None)
  Receive Date: 20110516
  Receipt Date: 20110508
  Transmission Date: 20111010
  Serious: No
  Sender: FDA-Public Use
  Company Number: US-PFIZER INC-2011095289

PATIENT
  Sex: Female
  Weight: 70 kg

DRUGS (6)
  1. LAMICTAL [Concomitant]
     Indication: CONVULSION
     Dosage: UNK
  2. ZOLOFT [Concomitant]
     Indication: DEPRESSION
     Dosage: UNK
  3. CHANTIX [Suspect]
     Indication: SMOKING CESSATION THERAPY
     Dosage: 0.5 MG, 1X/DAY
     Route: 048
     Dates: start: 20110418, end: 20110101
  4. SYNTHROID [Concomitant]
     Indication: HYPOTHYROIDISM
     Dosage: UNK
  5. CHANTIX [Suspect]
     Dosage: 1 MG, 2X/DAY
     Route: 048
     Dates: start: 20110101
  6. TEGRETOL [Concomitant]
     Indication: CONVULSION
     Dosage: UNK

REACTIONS (6)
  - IRRITABILITY [None]
  - ABNORMAL DREAMS [None]
  - CONSTIPATION [None]
  - FRUSTRATION [None]
  - ABDOMINAL PAIN UPPER [None]
  - DYSGEUSIA [None]
